FAERS Safety Report 18633444 (Version 1)
Quarter: 2020Q4

REPORT INFORMATION
  Report Type: Spontaneous
  Country: GB (occurrence: GB)
  Receive Date: 20201218
  Receipt Date: 20201218
  Transmission Date: 20210114
  Serious: Yes (Hospitalization, Other)
  Sender: FDA-Public Use
  Company Number: GB-PFIZER INC-2020495145

PATIENT
  Age: 20 Year
  Sex: Male

DRUGS (3)
  1. LAXIDO [Concomitant]
     Active Substance: POLYETHYLENE GLYCOL 3350\POTASSIUM CHLORIDE\SODIUM BICARBONATE\SODIUM CHLORIDE
     Indication: ANAL FISSURE
     Dosage: UNK
  2. SCHERIPROCT [CINCHOCAINE HYDROCHLORIDE;HEXACHLOROPHENE;PREDNISOLONE] [Concomitant]
     Indication: ANAL FISSURE
     Dosage: UNK
  3. SERTRALINE HCL [Suspect]
     Active Substance: SERTRALINE HYDROCHLORIDE
     Indication: DEPRESSION
     Dosage: 50 MG
     Route: 048
     Dates: start: 202009

REACTIONS (3)
  - Urinary retention [Recovered/Resolved]
  - Urinary tract infection [Unknown]
  - Rectal haemorrhage [Unknown]

NARRATIVE: CASE EVENT DATE: 20201116
